FAERS Safety Report 5695966-6 (Version None)
Quarter: 2008Q2

REPORT INFORMATION
  Report Type: 
  Country: None (occurrence: None)
  Receive Date: 20080407
  Receipt Date: 20080403
  Transmission Date: 20081010
  Serious: Yes (Life-Threatening, Hospitalization)
  Sender: FDA-Public Use
  Company Number: SE-ASTRAZENECA-2008SE01731

PATIENT
  Age: 3 Year
  Sex: Male

DRUGS (2)
  1. LIDOCAINE JELLY [Suspect]
     Indication: ANALGESIA
  2. STESOLID RECTALLY [Concomitant]
     Route: 054

REACTIONS (2)
  - CIRCULATORY COLLAPSE [None]
  - MEDICATION ERROR [None]
